FAERS Safety Report 5920466-5 (Version None)
Quarter: 2008Q4

REPORT INFORMATION
  Report Type: 
  Country: None (occurrence: None)
  Receive Date: 20081016
  Receipt Date: 20080623
  Transmission Date: 20090506
  Serious: Yes (Hospitalization)
  Sender: FDA-Public Use
  Company Number: PHEH2008US04497

PATIENT
  Sex: Female
  Weight: 77.551 kg

DRUGS (15)
  1. RECLAST [Suspect]
     Indication: OSTEOPOROSIS
     Dosage: 5 MG, ONCE/SINGLE
     Route: 042
     Dates: start: 20080424
  2. ENBREL [Concomitant]
     Dosage: 50 MG, QW
  3. PREDNISONE [Concomitant]
     Dosage: 5 MG, QD
  4. ERGOCALCIFEROL [Concomitant]
  5. VICODIN [Concomitant]
  6. HYDROCHLOROTHIAZIDE [Concomitant]
     Indication: HYPERTENSION
     Dosage: 25 MG, QD
     Route: 048
  7. NEXIUM [Concomitant]
  8. NORVASC [Concomitant]
     Indication: HYPERTENSION
     Dosage: 10 MG, QD
     Route: 058
  9. ZOCOR [Concomitant]
  10. HYZAAR [Concomitant]
  11. METOPROLOL TARTRATE [Concomitant]
  12. SKELAXIN [Concomitant]
  13. LEXAPRO [Concomitant]
     Dosage: 10 MG, QD
     Route: 048
  14. STARLIX [Concomitant]
     Dosage: 120 MG, TID
  15. LOPRESSOR [Concomitant]
     Dosage: 50 MG, BID

REACTIONS (3)
  - BONE PAIN [None]
  - MUSCULAR WEAKNESS [None]
  - URINARY TRACT INFECTION [None]
